FAERS Safety Report 5183696-9 (Version None)
Quarter: 2006Q4

REPORT INFORMATION
  Report Type: 
  Country: None (occurrence: None)
  Receive Date: 20061220
  Receipt Date: 20060130
  Transmission Date: 20070319
  Serious: No
  Sender: FDA-Public Use
  Company Number: US-GLAXOSMITHKLINE-A0591437A

PATIENT
  Age: 36 Year
  Sex: Female

DRUGS (2)
  1. NICODERM 21MG (RX) [Suspect]
  2. MEMBERS MARK NTS ORIGINAL, 21MG [Suspect]
     Dates: start: 20060123

REACTIONS (6)
  - APPLICATION SITE ERYTHEMA [None]
  - COLD SWEAT [None]
  - HYPERVENTILATION [None]
  - PHARMACEUTICAL PRODUCT COMPLAINT [None]
  - RETCHING [None]
  - VOMITING [None]
